FAERS Safety Report 10190068 (Version 1)
Quarter: 2014Q2

REPORT INFORMATION
  Report Type: Spontaneous
  Country: IE (occurrence: IE)
  Receive Date: 20140522
  Receipt Date: 20140522
  Transmission Date: 20141212
  Serious: Yes (Hospitalization)
  Sender: FDA-Public Use
  Company Number: IE-AMGEN-IRLSP2014037372

PATIENT
  Age: 78 Year
  Sex: Female

DRUGS (12)
  1. NEULASTA [Suspect]
     Indication: NON-SMALL CELL LUNG CANCER
     Dosage: 6 MG/0.6ML POST CHEMO EVERY THREE WEEKS
     Route: 058
     Dates: start: 201402
  2. MYCOSTATIN [Concomitant]
     Dosage: UNK
  3. DOMPERIDONE [Concomitant]
     Dosage: UNK
  4. ATORVASTATIN [Concomitant]
     Dosage: UNK
  5. MAXOLON [Concomitant]
     Dosage: UNK
  6. VENTOLIN                           /00139501/ [Concomitant]
     Dosage: UNK
  7. OMEPRAZOLE [Concomitant]
     Dosage: UNK
  8. ASPIRIN [Concomitant]
     Dosage: UNK
  9. SERETIDE [Concomitant]
     Dosage: UNK
  10. TRAMADOL [Concomitant]
     Dosage: UNK
  11. GLUCOPHAGE [Concomitant]
     Dosage: UNK
  12. DEXAMETHASONE [Concomitant]
     Dosage: UNK

REACTIONS (1)
  - Infection [Unknown]
